FAERS Safety Report 8877956 (Version 2)
Quarter: 2012Q4

REPORT INFORMATION
  Report Type: Spontaneous
  Country: IT (occurrence: None)
  Receive Date: 20121026
  Receipt Date: 20121107
  Transmission Date: 20130627
  Serious: Yes (Hospitalization)
  Sender: FDA-Public Use
  Company Number: AUR-APL-2012-04562

PATIENT
  Age: 42 Year
  Sex: Female

DRUGS (2)
  1. RAMIPRIL (RAMIPRIL) [Suspect]
     Indication: HEADACHE
     Route: 048
     Dates: start: 20121010, end: 20121010
  2. LOBIVON [Suspect]
     Dates: start: 20121010, end: 20121010

REACTIONS (2)
  - Hypotension [None]
  - Drug abuse [None]
